FAERS Safety Report 17040339 (Version 1)
Quarter: 2019Q4

REPORT INFORMATION
  Report Type: Spontaneous
  Country: US (occurrence: US)
  Receive Date: 20191117
  Receipt Date: 20191117
  Transmission Date: 20200122
  Serious: No
  Sender: FDA-Public Use
  Company Number: US-TORRENT-00007533

PATIENT
  Sex: Female
  Weight: 71 kg

DRUGS (19)
  1. DIAZEPAM. [Concomitant]
     Active Substance: DIAZEPAM
     Indication: ANXIETY
     Dosage: TAKEN UP TO THREE TIMES A DAY
     Route: 048
  2. VISTARIL [Concomitant]
     Active Substance: HYDROXYZINE PAMOATE
     Indication: PRURITUS
     Dosage: ONE CAPSULE FOUR TIMES A DAY AS NEEDED
  3. HYDROXYCHLOROQUINE [Concomitant]
     Active Substance: HYDROXYCHLOROQUINE
     Indication: PRODUCT USED FOR UNKNOWN INDICATION
     Dosage: TAKEN TWICE A DAY
     Route: 048
  4. BUSPAR [Concomitant]
     Active Substance: BUSPIRONE HYDROCHLORIDE
     Indication: ANXIETY
     Dosage: TWO TABLETS A DAY
     Route: 048
  5. CRESTOR [Concomitant]
     Active Substance: ROSUVASTATIN CALCIUM
     Indication: BLOOD CHOLESTEROL
     Dosage: ONCE A DAY
     Route: 048
  6. VITAMIN C [Concomitant]
     Active Substance: ASCORBIC ACID
     Indication: PRODUCT USED FOR UNKNOWN INDICATION
     Dosage: ONCE IN THE MORNING
     Route: 048
  7. MAGNESIUM OXIDE. [Concomitant]
     Active Substance: MAGNESIUM OXIDE
     Indication: PRODUCT USED FOR UNKNOWN INDICATION
     Dosage: ONCE DAILY
     Route: 048
  8. VITAMIN D3 [Concomitant]
     Active Substance: CHOLECALCIFEROL
     Indication: VITAMIN D DEFICIENCY
     Dosage: ONCE IN THE MORNING AND AT NIGHT
     Route: 048
  9. ULTRAM [Concomitant]
     Active Substance: TRAMADOL HYDROCHLORIDE
     Indication: PAIN
     Dosage: TAKEN AS NEEDED
     Route: 048
  10. ASTELIN [Concomitant]
     Active Substance: AZELASTINE HYDROCHLORIDE
     Indication: PRODUCT USED FOR UNKNOWN INDICATION
     Dosage: INTRANASAL?NOT USED OFTEN PER PATIENT
     Route: 045
  11. IMITREX [Concomitant]
     Active Substance: SUMATRIPTAN SUCCINATE
     Indication: MIGRAINE
     Dosage: TAKEN AS NEEDED FOR MIGRAINES. MAY REPEAT DOSAGE ONCE AFTER 2 H IF HEADACHE OCCURS
     Route: 048
  12. SINGULAIR [Concomitant]
     Active Substance: MONTELUKAST SODIUM
     Indication: MULTIPLE ALLERGIES
     Dosage: TAKEN AT NIGHT
     Route: 048
  13. CALCIUM/VITAMIN D [Concomitant]
     Active Substance: CALCIUM\VITAMIN D
     Indication: PRODUCT USED FOR UNKNOWN INDICATION
     Dosage: ONE IN THE MORNING AND AT NIGHT
  14. LOSARTAN. [Suspect]
     Active Substance: LOSARTAN
     Indication: HYPERTENSION
     Dosage: 100 MG ONCE A DAY
     Route: 048
  15. PROLIA [Concomitant]
     Active Substance: DENOSUMAB
     Indication: BONE DISORDER
     Dosage: INJECTED EVERY 6 MONTHS
  16. NEURONTIN [Concomitant]
     Active Substance: GABAPENTIN
     Indication: PRURITUS
     Dosage: 100 MG EVERY NIGHT
     Route: 048
  17. GLUCOSAMINE [Concomitant]
     Active Substance: GLUCOSAMINE
     Indication: ARTHRALGIA
     Dosage: UNKNOWN
  18. ASPIRIN. [Concomitant]
     Active Substance: ASPIRIN
     Indication: PRODUCT USED FOR UNKNOWN INDICATION
     Dosage: TAKEN AT NIGHT
     Route: 048
  19. COENZYME Q10 [Concomitant]
     Active Substance: UBIDECARENONE
     Indication: PRODUCT USED FOR UNKNOWN INDICATION
     Dosage: ONCE DAILY

REACTIONS (6)
  - Cardiac disorder [Unknown]
  - Migraine [Recovering/Resolving]
  - Blood pressure abnormal [Recovering/Resolving]
  - Facial pain [Recovering/Resolving]
  - Ear pain [Recovering/Resolving]
  - Paraesthesia [Recovering/Resolving]
